FAERS Safety Report 15159739 (Version 1)
Quarter: 2018Q3

REPORT INFORMATION
  Report Type: Report from Study
  Country: BR (occurrence: BR)
  Receive Date: 20180718
  Receipt Date: 20180718
  Transmission Date: 20181010
  Serious: Yes (Other)
  Sender: FDA-Public Use
  Company Number: PHHY2018BR043443

PATIENT
  Age: 71 Year
  Sex: Male

DRUGS (1)
  1. DUOTRAVATAN [BAC] [Suspect]
     Active Substance: TIMOLOL MALEATE\TRAVOPROST
     Indication: GLAUCOMA
     Dosage: 1 GTT, QHS (01 DROP AT NIGHT IN EACH EYE, BEFORE SLEEPING)
     Route: 047
     Dates: end: 201711

REACTIONS (8)
  - Dry eye [Not Recovered/Not Resolved]
  - Concomitant disease aggravated [Not Recovered/Not Resolved]
  - Eye pruritus [Recovered/Resolved]
  - Eye haemorrhage [Not Recovered/Not Resolved]
  - Drug ineffective [Unknown]
  - Intraocular pressure increased [Unknown]
  - Ocular hyperaemia [Not Recovered/Not Resolved]
  - Eye irritation [Not Recovered/Not Resolved]

NARRATIVE: CASE EVENT DATE: 201707
